FAERS Safety Report 4832904-X (Version None)
Quarter: 2005Q4

REPORT INFORMATION
  Report Type: 
  Country: None (occurrence: None)
  Receive Date: 20051121
  Receipt Date: 20041004
  Transmission Date: 20060501
  Serious: Yes (Hospitalization, Disabling)
  Sender: FDA-Public Use
  Company Number: DE-MERCK-0410DEU00059

PATIENT
  Age: 59 Year
  Sex: Male
  Weight: 96 kg

DRUGS (5)
  1. VIOXX [Suspect]
     Indication: NECK PAIN
     Route: 048
     Dates: start: 20010406, end: 20040831
  2. VIOXX [Suspect]
     Route: 048
     Dates: start: 20040831, end: 20040101
  3. VIOXX [Suspect]
     Indication: CERVICOBRACHIAL SYNDROME
     Route: 048
     Dates: start: 20010406, end: 20040831
  4. VIOXX [Suspect]
     Route: 048
     Dates: start: 20040831, end: 20040101
  5. INSULIN [Concomitant]
     Route: 065

REACTIONS (10)
  - BRONCHITIS CHRONIC [None]
  - CARDIAC FAILURE [None]
  - CORONARY ARTERY DISEASE [None]
  - DEPRESSION [None]
  - DIZZINESS [None]
  - NAUSEA [None]
  - OEDEMA PERIPHERAL [None]
  - PNEUMONIA [None]
  - PRESCRIBED OVERDOSE [None]
  - RESTLESS LEGS SYNDROME [None]
